FAERS Safety Report 4669651-3 (Version None)
Quarter: 2005Q2

REPORT INFORMATION
  Report Type: 
  Country: None (occurrence: None)
  Receive Date: 20050520
  Receipt Date: 20050516
  Transmission Date: 20051028
  Serious: Yes (Death)
  Sender: FDA-Public Use
  Company Number: 05-02-0295

PATIENT
  Age: 46 Year
  Sex: Male
  Weight: 149.687 kg

DRUGS (2)
  1. CLOZAPINE [Suspect]
     Indication: SCHIZOPHRENIA
     Dosage: 100MG TID ORAL
     Route: 048
     Dates: start: 20000101, end: 20050201
  2. GEODON [Suspect]
     Dosage: 80MG BID
     Dates: start: 20040501, end: 20050201

REACTIONS (3)
  - LOSS OF CONSCIOUSNESS [None]
  - MYOCARDIAL INFARCTION [None]
  - WEIGHT INCREASED [None]
